FAERS Safety Report 21830910 (Version 1)
Quarter: 2023Q1

REPORT INFORMATION
  Report Type: Spontaneous
  Country: US (occurrence: US)
  Receive Date: 20230106
  Receipt Date: 20230106
  Transmission Date: 20230417
  Serious: No
  Sender: FDA-Public Use
  Company Number: US-PFIZER INC-202300002153

PATIENT
  Age: 72 Year
  Sex: Female

DRUGS (16)
  1. PAXLOVID [Suspect]
     Active Substance: NIRMATRELVIR\RITONAVIR
     Indication: COVID-19 treatment
     Dosage: UNK
     Dates: start: 20221222, end: 20221226
  2. SYNTHROID [Concomitant]
     Active Substance: LEVOTHYROXINE SODIUM
     Dosage: UNK
     Dates: start: 200702
  3. CRESTOR [Concomitant]
     Active Substance: ROSUVASTATIN CALCIUM
     Dosage: UNK
     Dates: start: 201601, end: 20221222
  4. DICLOFENAC SODIUM\MISOPROSTOL [Concomitant]
     Active Substance: DICLOFENAC SODIUM\MISOPROSTOL
     Dosage: UNK (ARTHRITIC, DICLOFENAC-MISOPROST75-200)
     Dates: start: 200001, end: 20221222
  5. ZYRTEC [Concomitant]
     Active Substance: CETIRIZINE HYDROCHLORIDE
     Dosage: UNK
     Dates: start: 199501
  6. ALLERTEC [CETIRIZINE HYDROCHLORIDE] [Concomitant]
     Dosage: UNK
     Dates: start: 199501
  7. COQ10 UBIQUINOL [Concomitant]
     Dosage: UNK
     Dates: start: 201601
  8. NASACORT [Concomitant]
     Active Substance: TRIAMCINOLONE ACETONIDE
     Dosage: UNK (CHATTEM)
     Dates: start: 201010
  9. LATANOPROST [Concomitant]
     Active Substance: LATANOPROST
     Dosage: UNK
     Dates: start: 201909
  10. CITRUCEL [Concomitant]
     Active Substance: METHYLCELLULOSE (4000 MPA.S)
     Dosage: UNK
     Dates: start: 201601
  11. COLACE [Concomitant]
     Active Substance: DOCUSATE SODIUM
     Dosage: UNK
     Dates: start: 201601
  12. CULTURELLE [Concomitant]
     Active Substance: LACTOBACILLUS RHAMNOSUS
     Dosage: UNK
     Dates: start: 201001
  13. THERACRAN [Concomitant]
     Dosage: UNK (THERALOGIC)
     Dates: start: 201912
  14. QUNOL TURMERIC EXTRA STRENGTH [Concomitant]
     Dosage: UNK
     Dates: start: 202102
  15. NATROL [Concomitant]
     Dosage: UNK (REPORTED AS MELATONIN)
     Dates: start: 201801
  16. NATURE^S BOUNTY D3 [Concomitant]
     Dosage: UNK
     Dates: start: 201506

REACTIONS (2)
  - COVID-19 [Recovering/Resolving]
  - Disease recurrence [Recovering/Resolving]

NARRATIVE: CASE EVENT DATE: 20221230
